FAERS Safety Report 8610311-1 (Version None)
Quarter: 2012Q3

REPORT INFORMATION
  Report Type: 
  Country: None (occurrence: None)
  Receive Date: 20120822
  Receipt Date: 20120815
  Transmission Date: 20120928
  Serious: Yes (Hospitalization, Other)
  Sender: FDA-Public Use
  Company Number: PHFR2012IE001075

PATIENT
  Sex: Male

DRUGS (23)
  1. CLOZARIL [Suspect]
     Route: 048
     Dates: start: 20120420
  2. FYBOGEL ORANGE [Concomitant]
     Dosage: 1 SACHET BD PRN
     Route: 048
  3. ASPIRIN [Concomitant]
     Dosage: 75 MG, MANE
     Route: 048
  4. AMOXICILLIN AND CLAVULANATE POTASSIUM [Concomitant]
     Dosage: 625 MG, TID
     Route: 048
  5. KWELLS [Concomitant]
     Indication: SALIVARY HYPERSECRETION
     Route: 048
  6. CLOZARIL [Suspect]
     Route: 048
     Dates: end: 20120417
  7. VALPROIC ACID [Concomitant]
     Dosage: 250 MG, (250 MG MANE AND 50 MG NOCTE)
  8. CLARITHROMYCIN [Concomitant]
     Dosage: 500 MG, BID
     Route: 048
  9. PLAVIX [Concomitant]
     Dosage: 50 MG, UNK
  10. VALPROIC ACID [Concomitant]
     Dosage: 1500 MG, DAILY (500 MG MANE AND 1000 MG NOCTE)
     Route: 048
  11. ACETAMINOPHEN [Concomitant]
     Dosage: 1 G, QDS
     Route: 048
  12. METOPROLOL TARTRATE [Concomitant]
     Dosage: 50 MG, BID
     Route: 048
  13. HYOSCINE HYDROBROMIDE [Concomitant]
     Dosage: 300 UG, TID
  14. PLAVIX [Concomitant]
     Dosage: 75 MG, DAILY
     Route: 048
  15. LACTULOSE [Concomitant]
     Dosage: 1 DF, BID
     Route: 048
  16. MOVIPREP [Concomitant]
     Dosage: 1 DF, (SACHET)
  17. NEILMED [Concomitant]
     Dosage: 1 DF, BID
     Route: 048
  18. CLOZARIL [Suspect]
     Dosage: 550 MG (150 MG MANE, 50 MG AT 13:00 HRS AND 350 MG NOCTE))
     Route: 048
  19. CLOZARIL [Suspect]
     Indication: SCHIZOPHRENIA
     Dosage: UNK UKN, UNK
     Route: 048
     Dates: start: 20050117
  20. CLOZARIL [Suspect]
     Dosage: 325 MG, UNK (125 MG MANE AND 200 MG NOCTE)
     Route: 048
  21. VALPROIC ACID [Concomitant]
     Dosage: 500MG MANE + 100MG NOCTE
     Route: 048
  22. VALPROIC ACID [Concomitant]
     Dosage: 1000 MG, NOCTE
     Route: 048
  23. CRESTOR [Concomitant]
     Dosage: 5 MG, NOCTE
     Route: 048

REACTIONS (10)
  - CHEST PAIN [None]
  - PLATELET COUNT DECREASED [None]
  - PULMONARY VALVE INCOMPETENCE [None]
  - SYNCOPE [None]
  - CARDIAC DISORDER [None]
  - ANTIPSYCHOTIC DRUG LEVEL ABOVE THERAPEUTIC [None]
  - CONVULSION [None]
  - SINUS TACHYCARDIA [None]
  - PROTHROMBIN TIME PROLONGED [None]
  - FALL [None]
